FAERS Safety Report 5888837-3 (Version None)
Quarter: 2008Q3

REPORT INFORMATION
  Report Type: 
  Country: None (occurrence: None)
  Receive Date: 20080919
  Receipt Date: 20080731
  Transmission Date: 20090109
  Serious: No
  Sender: FDA-Public Use
  Company Number: A0740520A

PATIENT
  Age: 52 Year
  Sex: Female

DRUGS (3)
  1. AVANDARYL [Suspect]
     Route: 048
     Dates: end: 20080729
  2. ADEECON [Concomitant]
  3. ASPIRIN [Concomitant]

REACTIONS (4)
  - ACNE [None]
  - ERYTHEMA [None]
  - OEDEMA PERIPHERAL [None]
  - OROPHARYNGEAL PAIN [None]
